FAERS Safety Report 9704662 (Version 1)
Quarter: 2013Q4

REPORT INFORMATION
  Report Type: Report from Study
  Country: US (occurrence: US)
  Receive Date: 20131122
  Receipt Date: 20131122
  Transmission Date: 20140711
  Serious: Yes (Hospitalization)
  Sender: FDA-Public Use
  Company Number: US-US-EMD SERONO, INC.-7250721

PATIENT
  Sex: Male

DRUGS (1)
  1. SEROSTIM [(SOMATROPIN (RDNA ORIGIN) FOR INJECTION)] [Suspect]
     Indication: HIV WASTING SYNDROME
     Dates: end: 201310

REACTIONS (5)
  - Renal failure [Unknown]
  - Hypotension [Unknown]
  - Pericardial effusion [Unknown]
  - Asthenia [Unknown]
  - Fall [Unknown]
